FAERS Safety Report 15136497 (Version 1)
Quarter: 2018Q3

REPORT INFORMATION
  Report Type: Spontaneous
  Country: FR (occurrence: FR)
  Receive Date: 20180712
  Receipt Date: 20180712
  Transmission Date: 20181010
  Serious: Yes (Hospitalization)
  Sender: FDA-Public Use
  Company Number: FR-ELI_LILLY_AND_COMPANY-FR201807003750

PATIENT
  Age: 67 Year
  Sex: Male
  Weight: 70 kg

DRUGS (3)
  1. HYDROCORTISONE                     /00028605/ [Suspect]
     Active Substance: HYDROCORTISONE BUTYRATE
     Indication: PREMEDICATION
     Dosage: 100 MG, UNKNOWN
     Route: 042
     Dates: start: 20171218, end: 20171218
  2. ERBITUX [Suspect]
     Active Substance: CETUXIMAB
     Indication: SQUAMOUS CELL CARCINOMA
     Dosage: 710 MG, UNKNOWN
     Route: 042
     Dates: start: 20171218, end: 20171218
  3. POLARAMINE [Suspect]
     Active Substance: DEXCHLORPHENIRAMINE MALEATE
     Indication: PREMEDICATION
     Dosage: 5 MG, UNKNOWN
     Route: 042
     Dates: start: 20171218, end: 20171218

REACTIONS (3)
  - Hypersensitivity [Recovered/Resolved]
  - Oxygen saturation decreased [Recovered/Resolved]
  - Rash [Recovered/Resolved]

NARRATIVE: CASE EVENT DATE: 20171218
